FAERS Safety Report 6032481-4 (Version None)
Quarter: 2009Q1

REPORT INFORMATION
  Report Type: 
  Country: None (occurrence: None)
  Receive Date: 20090107
  Receipt Date: 20090107
  Transmission Date: 20090719
  Serious: Yes (Hospitalization)
  Sender: FDA-Public Use
  Company Number: None

PATIENT
  Sex: Female
  Weight: 59.5 kg

DRUGS (4)
  1. FLUOROURACIL [Suspect]
     Dosage: 4564 MG
  2. CISPLATIN [Suspect]
     Dosage: 97 MG
  3. ERBITUX [Suspect]
     Dosage: 1224 MG
  4. ELLENCE [Suspect]
     Dosage: 61 MG

REACTIONS (2)
  - INFUSION RELATED REACTION [None]
  - NEUTROPHIL COUNT DECREASED [None]
